FAERS Safety Report 16708022 (Version 1)
Quarter: 2019Q3

REPORT INFORMATION
  Report Type: Spontaneous
  Country: GB (occurrence: GB)
  Receive Date: 20190815
  Receipt Date: 20190815
  Transmission Date: 20191004
  Serious: Yes (Hospitalization, Other)
  Sender: FDA-Public Use
  Company Number: GB-GILEAD-2019-0423897

PATIENT
  Age: 74 Year
  Sex: Male
  Weight: 66 kg

DRUGS (13)
  1. DESCOVY [Suspect]
     Active Substance: EMTRICITABINE\TENOFOVIR ALAFENAMIDE FUMARATE
     Indication: ANTIRETROVIRAL THERAPY
     Dosage: TENOFOVIR AF 25 MG/ EMTRICITABINE 200MG
     Route: 048
     Dates: start: 20190118, end: 20190506
  2. VITAMIN B [Concomitant]
     Active Substance: VITAMIN B
  3. RIFAXIMIN. [Concomitant]
     Active Substance: RIFAXIMIN
     Dosage: 550 MG
  4. THIAMINE. [Concomitant]
     Active Substance: THIAMINE
     Dosage: 100 MG
  5. PARACETAMOL [Concomitant]
     Active Substance: ACETAMINOPHEN
  6. DOLUTEGRAVIR [Concomitant]
     Active Substance: DOLUTEGRAVIR
     Dosage: 50 MG
  7. ATORVASTATIN [Concomitant]
     Active Substance: ATORVASTATIN
  8. RANITIDINE. [Concomitant]
     Active Substance: RANITIDINE
     Dosage: 150 MG
  9. AMLODIPINE [Concomitant]
     Active Substance: AMLODIPINE BESYLATE
     Dosage: 10 MG
  10. SPIRONOLACTONE. [Concomitant]
     Active Substance: SPIRONOLACTONE
     Dosage: 200 MG
  11. NIQUITIN [Concomitant]
     Active Substance: NICOTINE
  12. METFORMIN [Concomitant]
     Active Substance: METFORMIN HYDROCHLORIDE
     Dosage: 1 G
  13. ACCRETE D3 [Concomitant]
     Active Substance: CALCIUM CARBONATE\CHOLECALCIFEROL

REACTIONS (2)
  - Acute kidney injury [Recovered/Resolved]
  - Nausea [Unknown]
